FAERS Safety Report 19476046 (Version 1)
Quarter: 2021Q2

REPORT INFORMATION
  Report Type: Spontaneous
  Country: MY (occurrence: MY)
  Receive Date: 20210630
  Receipt Date: 20210630
  Transmission Date: 20210717
  Serious: Yes (Death)
  Sender: FDA-Public Use
  Company Number: MY-PFIZER INC-2021738635

PATIENT
  Age: 26 Year
  Sex: Male

DRUGS (2)
  1. IMIPENEM?CILASTATIN [Suspect]
     Active Substance: CILASTATIN SODIUM\IMIPENEM
     Indication: PSEUDOMONAS INFECTION
     Dosage: 500 MG, 4X/DAY
     Route: 042
  2. CLINDAMYCIN PHOSPHATE. [Suspect]
     Active Substance: CLINDAMYCIN PHOSPHATE
     Indication: PSEUDOMONAS INFECTION
     Dosage: 900 MG, 3X/DAY

REACTIONS (2)
  - Incorrect dose administered [Fatal]
  - Drug ineffective [Fatal]
